FAERS Safety Report 12904787 (Version 5)
Quarter: 2016Q4

REPORT INFORMATION
  Report Type: Spontaneous
  Country: VN (occurrence: VN)
  Receive Date: 20161102
  Receipt Date: 20161227
  Transmission Date: 20170207
  Serious: Yes (Hospitalization)
  Sender: FDA-Public Use
  Company Number: VN-PFIZER INC-2016510894

PATIENT
  Sex: Female

DRUGS (2)
  1. DEPO-MEDROL [Suspect]
     Active Substance: METHYLPREDNISOLONE ACETATE
     Indication: ARTHRITIS
     Dosage: 40MG/ML ;1ML INTRAMUSCULAR INJECTION IN BUTTOCK
     Route: 030
  2. DEPO-MEDROL [Suspect]
     Active Substance: METHYLPREDNISOLONE ACETATE
     Indication: ARTHRALGIA

REACTIONS (2)
  - Injection site abscess [Recovered/Resolved]
  - Subcutaneous abscess [Recovered/Resolved]
